FAERS Safety Report 6302828-X (Version None)
Quarter: 2009Q3

REPORT INFORMATION
  Report Type: 
  Country: None (occurrence: None)
  Receive Date: 20090810
  Receipt Date: 20090803
  Transmission Date: 20100115
  Serious: Yes (Death, Hospitalization)
  Sender: FDA-Public Use
  Company Number: FR-ELI_LILLY_AND_COMPANY-FR200908000187

PATIENT
  Sex: Male

DRUGS (9)
  1. GEMZAR [Suspect]
     Indication: PERITONEAL SARCOMA
     Dosage: 1910 MG, UNKNOWN
     Route: 042
     Dates: start: 20080226, end: 20080513
  2. TAXOTERE [Concomitant]
     Dosage: 143 MG, UNKNOWN
     Route: 042
     Dates: start: 20080304, end: 20080513
  3. GRANOCYTE [Concomitant]
     Dosage: UNK, UNKNOWN
     Route: 042
     Dates: start: 20080401
  4. ISOPTIN [Concomitant]
     Dosage: 240 MG, DAILY (1/D)
     Route: 065
  5. KARDEGIC [Concomitant]
     Dosage: 75 MG, DAILY (1/D)
     Route: 065
  6. ADANCOR [Concomitant]
     Dosage: 10 MG, 2/D
     Route: 065
  7. CIBACENE [Concomitant]
     Dosage: 5 MG, DAILY (1/D)
     Route: 065
  8. TADENAN [Concomitant]
     Dosage: 50 MG, 2/D
     Route: 065
  9. BEFIZAL [Concomitant]
     Dosage: UNK, UNKNOWN
     Route: 065

REACTIONS (8)
  - ANAEMIA [None]
  - CARDIOPULMONARY FAILURE [None]
  - CYTOLYTIC HEPATITIS [None]
  - DYSPNOEA [None]
  - GENERAL PHYSICAL HEALTH DETERIORATION [None]
  - INTERSTITIAL LUNG DISEASE [None]
  - NEOPLASM PROGRESSION [None]
  - PULMONARY EMBOLISM [None]
